FAERS Safety Report 6972765-6 (Version None)
Quarter: 2010Q3

REPORT INFORMATION
  Report Type: 
  Country: None (occurrence: None)
  Receive Date: 20100909
  Receipt Date: 20100831
  Transmission Date: 20110219
  Serious: Yes (Death)
  Sender: FDA-Public Use
  Company Number: US-JNJFOC-20100902280

PATIENT
  Sex: Female

DRUGS (1)
  1. PHOSPHO-SODA [Suspect]
     Indication: CONSTIPATION
     Route: 048

REACTIONS (2)
  - HYPOCALCAEMIA [None]
  - OVERDOSE [None]
